FAERS Safety Report 5836467-1 (Version None)
Quarter: 2008Q3

REPORT INFORMATION
  Report Type: 
  Country: None (occurrence: None)
  Receive Date: 20080807
  Receipt Date: 20080730
  Transmission Date: 20090109
  Serious: Yes (Hospitalization)
  Sender: FDA-Public Use
  Company Number: PHBS2007GB16393

PATIENT
  Sex: Male

DRUGS (5)
  1. STALEVO 100 [Suspect]
     Indication: PARKINSON'S DISEASE
     Dosage: 100 MG, 6QD
     Route: 048
     Dates: start: 20070711, end: 20070816
  2. LACTULOSE [Concomitant]
     Indication: CONSTIPATION
     Dosage: 10 ML/DAY
     Route: 048
     Dates: start: 20070720
  3. QUETIAPINE FUMARATE [Concomitant]
     Indication: AGITATION
     Dosage: 12.5 MG/DAY
     Route: 048
     Dates: start: 20070714
  4. AMOXICILLIN [Concomitant]
     Indication: LOWER RESPIRATORY TRACT INFECTION
     Dosage: 500 MG/DAY
     Route: 048
     Dates: start: 20070803
  5. CO-AMILOFRUSE [Concomitant]
     Indication: OEDEMA
     Dosage: 25/20 MG/DAY
     Route: 048
     Dates: start: 20070810

REACTIONS (8)
  - BLISTER [None]
  - DISEASE PROGRESSION [None]
  - LIVER FUNCTION TEST ABNORMAL [None]
  - MOBILITY DECREASED [None]
  - PEMPHIGUS [None]
  - RASH [None]
  - RASH MACULAR [None]
  - URTICARIA [None]
